FAERS Safety Report 20240398 (Version 1)
Quarter: 2021Q4

REPORT INFORMATION
  Report Type: Report from Study
  Country: US (occurrence: US)
  Receive Date: 20211228
  Receipt Date: 20211228
  Transmission Date: 20220303
  Serious: Yes (Hospitalization)
  Sender: FDA-Public Use
  Company Number: US-PFIZER INC-202101797754

PATIENT
  Age: 71 Year
  Sex: Male

DRUGS (3)
  1. PALBOCICLIB [Suspect]
     Active Substance: PALBOCICLIB
     Dosage: 125 MG, CYCLIC DAYS 1-21
     Dates: start: 20210504, end: 20211124
  2. CETUXIMAB [Suspect]
     Active Substance: CETUXIMAB
     Dosage: 400 MG/M2, LOADING DOSE
     Dates: start: 20210504, end: 20210504
  3. CETUXIMAB [Suspect]
     Active Substance: CETUXIMAB
     Dosage: 125 MG/M2, CYCLIC EVERY 28 DAYS
     Dates: start: 20210504, end: 20211124

REACTIONS (2)
  - Hypocalcaemia [Not Recovered/Not Resolved]
  - Hypokalaemia [Not Recovered/Not Resolved]

NARRATIVE: CASE EVENT DATE: 20211214
